FAERS Safety Report 22158024 (Version 2)
Quarter: 2023Q2

REPORT INFORMATION
  Report Type: Spontaneous
  Country: JP (occurrence: JP)
  Receive Date: 20230330
  Receipt Date: 20230526
  Transmission Date: 20230721
  Serious: Yes (Death, Other)
  Sender: FDA-Public Use
  Company Number: JP-009507513-2303JPN010084

PATIENT
  Age: 77 Year
  Sex: Male

DRUGS (1)
  1. KEYTRUDA [Suspect]
     Active Substance: PEMBROLIZUMAB
     Indication: Lung adenocarcinoma
     Dosage: 200 MG/M2 EVERY THREE WEEKS
     Route: 041

REACTIONS (4)
  - Malignant neoplasm progression [Fatal]
  - Bronchiolitis [Recovering/Resolving]
  - Cholangitis sclerosing [Recovered/Resolved]
  - Incorrect dose administered [Unknown]
